FAERS Safety Report 5054127-4 (Version None)
Quarter: 2006Q3

REPORT INFORMATION
  Report Type: 
  Country: None (occurrence: None)
  Receive Date: 20060713
  Receipt Date: 20060705
  Transmission Date: 20061208
  Serious: Yes (Death, Life-Threatening)
  Sender: FDA-Public Use
  Company Number: 2006JP001813

PATIENT
  Age: 64 Year
  Sex: Male

DRUGS (12)
  1. TACROLIMUS CAPSULES (TACROLIMUS) CAPSULE [Suspect]
     Indication: RHEUMATOID ARTHRITIS
     Dosage: 2 MG, D, ORAL; 3 MG, D, ORAL
     Route: 048
     Dates: start: 20060302, end: 20060315
  2. TACROLIMUS CAPSULES (TACROLIMUS) CAPSULE [Suspect]
     Indication: RHEUMATOID ARTHRITIS
     Dosage: 2 MG, D, ORAL; 3 MG, D, ORAL
     Route: 048
     Dates: start: 20060316, end: 20060620
  3. PREDNISOLONE [Suspect]
     Indication: RHEUMATOID ARTHRITIS
     Dosage: 12 MG, D, ORAL
     Route: 048
     Dates: end: 20060620
  4. GASTER PER ORAL NOS [Concomitant]
  5. MOBIC (MELOXICAM) PER ORAL NOS [Concomitant]
  6. NORVASC (AMLODIPINE BESILATE) PER ORAL NOS [Concomitant]
  7. LOXONIN (LOXOPROFEN) PER ORAL NOS [Concomitant]
  8. LIPITOR (ATORVASTATIN CALCIUM) PER ORAL NOS [Concomitant]
  9. OMEPRAZON (OMEPRAZOLE) PER ORAL NOS [Concomitant]
  10. PROMAC (POLAPREZINC) PER ORAL NOS [Concomitant]
  11. MUCOSTA (REBAMIPIDE) PER ORAL NOS [Concomitant]
  12. FOSAMAC (ALENDRONATE SODIUM) PER ORAL NOS [Concomitant]

REACTIONS (2)
  - INTERSTITIAL LUNG DISEASE [None]
  - PNEUMOCYSTIS JIROVECI PNEUMONIA [None]
